FAERS Safety Report 7943123-2 (Version None)
Quarter: 2011Q4

REPORT INFORMATION
  Report Type: 
  Country: None (occurrence: None)
  Receive Date: 20111122
  Receipt Date: 20110906
  Transmission Date: 20120403
  Serious: Yes (Other)
  Sender: FDA-Public Use
  Company Number: PHHY2011US39762

PATIENT
  Age: 55 Year
  Sex: Female

DRUGS (25)
  1. TOPROL-XL [Concomitant]
  2. VITAMIN B2 (RIBOFLAVIN) [Concomitant]
  3. ESTRATEST [Concomitant]
  4. CALCIUM CARBONATE [Concomitant]
  5. FAMPRIDINE (FAMPRIDINE) ONGOING [Concomitant]
  6. CONCERTA (METHYLPHENIDATE HYDROCHLORIDE) ONGOING [Concomitant]
  7. ALLEGRA [Concomitant]
  8. EMITEX /00014902/ (CYCLIZINE HYDROCHLORIDE) [Concomitant]
  9. TOPAMAX (TOPIRAMATE) 05/05/2011 TO UNK [Concomitant]
  10. ALPHAGAN [Concomitant]
  11. MIGRAIN NASAL SPRAY (OXYMETAZOLINE HYDROCHLORIDE) 06/04/2009 TO UNK [Concomitant]
  12. ZANAFLEX (TIZANIDINE HYDROCHLORIDE) 05/05/2011 TO UNK [Concomitant]
  13. BEPREVE 04/11/2010 TO UNK [Concomitant]
  14. ZOLOFT [Concomitant]
  15. ZYRTEC (CETIRIZINE HYDROCHLORIDE) 05/05/2011 TO UNK [Concomitant]
  16. MIGRAIN NASAL SPRAY (OXYMETAZOLINE HYDROCHLORIDE) [Concomitant]
  17. GILENYA [Suspect]
     Indication: MULTIPLE SCLEROSIS
     Dosage: 0.5 MG, QD, ORAL
     Route: 048
     Dates: start: 20110103
  18. VITAMIN B12 [Concomitant]
  19. PREVEN (ETHINYLESTRADIOL, LEVONORGESTREL) [Concomitant]
  20. AMBIEN [Concomitant]
  21. VERAMYST (FLUTICASONE FUROATE) [Concomitant]
  22. ASCORBIC ACID [Concomitant]
  23. ARICEPT (DONEPEZIL HYDROCHLORIDE) ONGOING [Concomitant]
  24. SOL MEDROL (METHYLPREDNISOLONE, SUCCINATE SODIUM) [Concomitant]
  25. VITAMIN D (ERGOCALCIFEROL) 05/05/2011 TO UNK [Concomitant]

REACTIONS (11)
  - HEADACHE [None]
  - GRANULOCYTE COUNT INCREASED [None]
  - BLOOD CREATININE INCREASED [None]
  - BLOOD TRIGLYCERIDES INCREASED [None]
  - ALANINE AMINOTRANSFERASE INCREASED [None]
  - MEAN CELL HAEMOGLOBIN DECREASED [None]
  - LIVER FUNCTION TEST ABNORMAL [None]
  - HIGH DENSITY LIPOPROTEIN INCREASED [None]
  - ASPARTATE AMINOTRANSFERASE INCREASED [None]
  - LYMPHOCYTE COUNT INCREASED [None]
  - UROBILINOGEN URINE INCREASED [None]
